FAERS Safety Report 6380727-5 (Version None)
Quarter: 2009Q3

REPORT INFORMATION
  Report Type: 
  Country: None (occurrence: None)
  Receive Date: 20090929
  Receipt Date: 20090917
  Transmission Date: 20100115
  Serious: Yes (Other)
  Sender: FDA-Public Use
  Company Number: JP-PFIZER INC-2009271443

PATIENT
  Age: 19 Year

DRUGS (6)
  1. SOMATROPIN [Suspect]
     Indication: GROWTH HORMONE DEFICIENCY
     Dosage: 0.7 MG, WEEKLY
     Route: 058
     Dates: start: 20070510, end: 20080621
  2. SOMATROPIN [Suspect]
     Dosage: 1.4 MG, WEEKLY
     Route: 058
     Dates: start: 20080122, end: 20081015
  3. CORTRIL [Concomitant]
     Dosage: UNK
     Route: 048
     Dates: start: 20070206
  4. THYRADIN S [Concomitant]
     Dosage: UNK
     Route: 048
  5. PHENOBARBITAL TAB [Concomitant]
     Dosage: UNK
     Route: 048
  6. DESMOPRESSIN ACETATE [Concomitant]
     Dosage: UNK

REACTIONS (2)
  - CRANIOPHARYNGIOMA [None]
  - DISEASE PROGRESSION [None]
